FAERS Safety Report 10742339 (Version 1)
Quarter: 2015Q1

REPORT INFORMATION
  Report Type: Spontaneous
  Country: IT (occurrence: NL)
  Receive Date: 20150127
  Receipt Date: 20150127
  Transmission Date: 20150721
  Serious: Yes (Other)
  Sender: FDA-Public Use
  Company Number: NL-FRI-1000073702

PATIENT
  Age: 45 Year
  Sex: Female
  Weight: 80 kg

DRUGS (2)
  1. MICROGYNON [Concomitant]
     Active Substance: ETHINYL ESTRADIOL\LEVONORGESTREL ACETATE
     Route: 048
     Dates: start: 20030101
  2. NEBIVOLOL [Suspect]
     Active Substance: NEBIVOLOL
     Indication: PRINZMETAL ANGINA
     Dosage: 5 MG
     Route: 048
     Dates: start: 20141111, end: 20141208

REACTIONS (3)
  - Dissociative disorder [Recovered/Resolved]
  - Off label use [Recovered/Resolved]
  - Hallucination [Recovered/Resolved]

NARRATIVE: CASE EVENT DATE: 20141111
